FAERS Safety Report 6243438-2 (Version None)
Quarter: 2009Q2

REPORT INFORMATION
  Report Type: 
  Country: None (occurrence: None)
  Receive Date: 20090624
  Receipt Date: 20090611
  Transmission Date: 20091009
  Serious: No
  Sender: FDA-Public Use
  Company Number: US-ELI_LILLY_AND_COMPANY-US200906003062

PATIENT
  Sex: Female

DRUGS (2)
  1. ZYPREXA [Suspect]
     Dosage: 5 MG, UNK
     Dates: start: 20090401, end: 20090101
  2. LITHIUM CARBONATE [Concomitant]

REACTIONS (2)
  - CONTUSION [None]
  - PAIN [None]
